FAERS Safety Report 6317468-6 (Version None)
Quarter: 2009Q3

REPORT INFORMATION
  Report Type: 
  Country: None (occurrence: None)
  Receive Date: 20090821
  Receipt Date: 20090817
  Transmission Date: 20100115
  Serious: No
  Sender: FDA-Public Use
  Company Number: US-JNJFOC-20090805746

PATIENT
  Age: 26 Year
  Sex: Female

DRUGS (1)
  1. DURAGESIC-100 [Suspect]
     Indication: DRUG USE FOR UNKNOWN INDICATION
     Route: 062

REACTIONS (7)
  - ADVERSE DRUG REACTION [None]
  - APPLICATION SITE IRRITATION [None]
  - DEVICE ADHESION ISSUE [None]
  - DRUG ADMINISTERED AT INAPPROPRIATE SITE [None]
  - NAUSEA [None]
  - PRURITUS [None]
  - WRONG TECHNIQUE IN DRUG USAGE PROCESS [None]
